FAERS Safety Report 23240116 (Version 1)
Quarter: 2023Q4

REPORT INFORMATION
  Report Type: Spontaneous
  Country: US (occurrence: US)
  Receive Date: 20231129
  Receipt Date: 20231129
  Transmission Date: 20240110
  Serious: No
  Sender: FDA-Public Use
  Company Number: US-GLAXOSMITHKLINE-USCH2023057660

PATIENT
  Age: 53 Year

DRUGS (1)
  1. VOLTAREN [Suspect]
     Active Substance: DICLOFENAC SODIUM
     Indication: Skin exfoliation
     Dosage: UNK
     Dates: start: 20231113

REACTIONS (1)
  - Product use in unapproved indication [Recovering/Resolving]
